FAERS Safety Report 8367593-3 (Version None)
Quarter: 2012Q1

REPORT INFORMATION
  Report Type: 
  Country: None (occurrence: None)
  Receive Date: 20120323
  Receipt Date: 20110729
  Transmission Date: 20120608
  Serious: Yes (Other)
  Sender: FDA-Public Use
  Company Number: 163-21880-11080065

PATIENT
  Age: 43 Year
  Sex: Female
  Weight: 71.2147 kg

DRUGS (6)
  1. VELCADE [Concomitant]
  2. KLOR-CON (POTASSIUM CHLORIDE) (UNKNOWN) [Concomitant]
  3. RECLIPSEN (MARVELON) (UNKNOWN) [Concomitant]
  4. ATIVAN [Concomitant]
  5. ACYCLOVIR (ACICLOVIR) (UNKNOWN) [Concomitant]
  6. REVLIMID [Suspect]
     Indication: MULTIPLE MYELOMA
     Dosage: 15 MG, 1 IN 1 D, PO
     Route: 048
     Dates: start: 20110301

REACTIONS (5)
  - PULMONARY THROMBOSIS [None]
  - DYSPNOEA [None]
  - CHEST DISCOMFORT [None]
  - CHEST PAIN [None]
  - WHEEZING [None]
